FAERS Safety Report 22241424 (Version 2)
Quarter: 2023Q2

REPORT INFORMATION
  Report Type: Report from Study
  Country: CA (occurrence: CA)
  Receive Date: 20230421
  Receipt Date: 20230504
  Transmission Date: 20230722
  Serious: Yes (Other)
  Sender: FDA-Public Use
  Company Number: CA-002147023-NVSC2022CA125306

PATIENT
  Age: 62 Year
  Sex: Male

DRUGS (2)
  1. MAYZENT [Suspect]
     Active Substance: SIPONIMOD
     Indication: Secondary progressive multiple sclerosis
     Dosage: 2 MG, QD
     Route: 048
     Dates: start: 20220506
  2. BOTOX [Concomitant]
     Active Substance: ONABOTULINUMTOXINA
     Indication: Muscle spasticity
     Dosage: UNK (16 MAY)
     Route: 065

REACTIONS (8)
  - Cervical spinal stenosis [Unknown]
  - Amnesia [Unknown]
  - Musculoskeletal stiffness [Recovered/Resolved]
  - Intervertebral disc protrusion [Unknown]
  - Exostosis [Unknown]
  - Mass [Unknown]
  - Intervertebral disc degeneration [Unknown]
  - Hypertension [Unknown]

NARRATIVE: CASE EVENT DATE: 20220621
